FAERS Safety Report 20491200 (Version 1)
Quarter: 2022Q1

REPORT INFORMATION
  Report Type: Spontaneous
  Country: JP (occurrence: JP)
  Receive Date: 20220218
  Receipt Date: 20220218
  Transmission Date: 20220423
  Serious: Yes (Hospitalization, Other)
  Sender: FDA-Public Use
  Company Number: JP-GLAXOSMITHKLINE-JP2022JPN026865

PATIENT
  Age: 25 Year
  Sex: Male

DRUGS (2)
  1. LAMICTAL [Suspect]
     Active Substance: LAMOTRIGINE
     Indication: Epilepsy
     Dosage: 300 MG, 1D
     Route: 048
  2. LAMICTAL [Suspect]
     Active Substance: LAMOTRIGINE
     Dosage: 100 MG, 1D
     Route: 048

REACTIONS (9)
  - Generalised tonic-clonic seizure [Recovering/Resolving]
  - Proteinuria [Unknown]
  - Glomerulonephritis rapidly progressive [Unknown]
  - Nephrotic syndrome [Unknown]
  - Urate nephropathy [Unknown]
  - Acute kidney injury [Unknown]
  - Oedema peripheral [Unknown]
  - Hyperuricaemia [Unknown]
  - Product use issue [Unknown]
